FAERS Safety Report 9214828 (Version 1)
Quarter: 2013Q2

REPORT INFORMATION
  Report Type: Spontaneous
  Country: DE (occurrence: DE)
  Receive Date: 20130405
  Receipt Date: 20130405
  Transmission Date: 20140414
  Serious: Yes (Hospitalization)
  Sender: FDA-Public Use
  Company Number: DE-EISAI INC-E2007-01127-SPO-DE

PATIENT
  Age: 25 Year
  Sex: Male

DRUGS (3)
  1. FYCOMPA [Suspect]
     Indication: EPILEPSY
     Dosage: UNKNOWN
     Route: 048
     Dates: start: 201209
  2. FYCOMPA [Suspect]
     Dosage: 12 MG/DAY
     Route: 048
  3. APYDAN [Concomitant]
     Indication: EPILEPSY
     Dosage: 1800 MG/DAY
     Route: 048

REACTIONS (1)
  - Pancreatitis acute [Unknown]
